FAERS Safety Report 7598056-0 (Version None)
Quarter: 2011Q3

REPORT INFORMATION
  Report Type: 
  Country: None (occurrence: None)
  Receive Date: 20110708
  Receipt Date: 20110629
  Transmission Date: 20111222
  Serious: Yes (Death, Hospitalization, Other)
  Sender: FDA-Public Use
  Company Number: JP-CELGENEUS-087-21880-10120472

PATIENT
  Sex: Female
  Weight: 34.5 kg

DRUGS (14)
  1. DECADRON [Suspect]
     Dosage: 1.65 GRAM
     Route: 041
     Dates: start: 20101030, end: 20101102
  2. DECADRON [Suspect]
     Indication: MULTIPLE MYELOMA
     Dosage: 6.6 MILLIGRAM
     Route: 041
     Dates: start: 20101002, end: 20101005
  3. LASIX [Concomitant]
     Indication: MULTIPLE MYELOMA
     Dosage: 20 MILLIGRAM
     Route: 051
     Dates: start: 20100801, end: 20101026
  4. NEOPHYLLIN [Concomitant]
     Indication: MULTIPLE MYELOMA
     Dosage: 250 MILLIGRAM
     Route: 041
     Dates: start: 20101114, end: 20101203
  5. DECADRON [Suspect]
     Dosage: 6.6 MILLIGRAM
     Route: 041
     Dates: start: 20101030, end: 20101102
  6. REVLIMID [Suspect]
     Indication: MULTIPLE MYELOMA
     Dosage: 10 MILLIGRAM
     Route: 048
     Dates: start: 20101002, end: 20101022
  7. REVLIMID [Suspect]
     Dosage: 10 MILLIGRAM
     Route: 048
     Dates: start: 20101030, end: 20101119
  8. OMPERAL [Concomitant]
     Indication: PROPHYLAXIS
     Dosage: 20 MILLIGRAM
     Route: 048
     Dates: start: 20100224, end: 20101202
  9. LOXONIN [Concomitant]
     Indication: MULTIPLE MYELOMA
     Dosage: 120 MILLIGRAM
     Route: 048
     Dates: start: 20100201, end: 20101202
  10. DECADRON [Suspect]
     Dosage: 6.6 MILLIGRAM
     Route: 041
     Dates: start: 20101010, end: 20101013
  11. ORGARAN [Concomitant]
     Indication: MULTIPLE MYELOMA
     Dosage: 2500 MILLIGRAM
     Route: 051
     Dates: start: 20101031, end: 20101203
  12. LASIX [Concomitant]
     Dosage: 20 MILLIGRAM
     Route: 051
     Dates: start: 20101029, end: 20101102
  13. REVLIMID [Suspect]
     Dosage: 15 MILLIGRAM
     Route: 048
     Dates: start: 20101127, end: 20101202
  14. FENTANYL [Concomitant]
     Indication: MULTIPLE MYELOMA
     Dosage: 2.1 MILLIGRAM
     Route: 003
     Dates: start: 20100201, end: 20101203

REACTIONS (6)
  - URINARY TRACT INFECTION [None]
  - NEUTROPHIL COUNT DECREASED [None]
  - HYPERTENSION [None]
  - MULTIPLE MYELOMA [None]
  - FEBRILE NEUTROPENIA [None]
  - WHITE BLOOD CELL COUNT DECREASED [None]
